FAERS Safety Report 17505479 (Version 1)
Quarter: 2020Q3

REPORT INFORMATION
  Report Type: Spontaneous
  Country: US (occurrence: US)
  Receive Date: 20200306
  Receipt Date: 20200306
  Transmission Date: 20201105
  Serious: Yes (Death, Hospitalization)
  Sender: FDA-Public Use
  Company Number: US-TEVA-2020-US-1193410

PATIENT
  Age: 53 Year
  Sex: Female

DRUGS (3)
  1. PHENAZOPYRIDINE. [Suspect]
     Active Substance: PHENAZOPYRIDINE
     Route: 048
  2. NOREPINEPHRINE. [Suspect]
     Active Substance: NOREPINEPHRINE
     Indication: HYPOTENSION
     Route: 065
  3. METHYLENE BLUE. [Suspect]
     Active Substance: METHYLENE BLUE
     Indication: TOXICITY TO VARIOUS AGENTS
     Dosage: TOTAL OF 5 MG/KG
     Route: 065

REACTIONS (14)
  - Toxicity to various agents [Fatal]
  - Renal failure [Unknown]
  - Confusional state [Recovered/Resolved]
  - Drug abuse [Unknown]
  - Tachycardia [Unknown]
  - Transaminases increased [Unknown]
  - Hypotension [Unknown]
  - Cyanosis [Unknown]
  - Drug ineffective [Unknown]
  - Acidosis [Unknown]
  - Electrocardiogram QT prolonged [Unknown]
  - Methaemoglobinaemia [Unknown]
  - Hypertension [Recovered/Resolved]
  - Jaundice [Unknown]
